FAERS Safety Report 6845203-1 (Version None)
Quarter: 2010Q3

REPORT INFORMATION
  Report Type: 
  Country: None (occurrence: None)
  Receive Date: 20100715
  Receipt Date: 20070712
  Transmission Date: 20110219
  Serious: No
  Sender: FDA-Public Use
  Company Number: PFIZER INC-2007058821

PATIENT
  Sex: Female

DRUGS (15)
  1. CHANTIX [Suspect]
     Indication: SMOKING CESSATION THERAPY
     Route: 048
     Dates: start: 20070708
  2. NEXIUM [Concomitant]
  3. DETROL LA [Concomitant]
  4. WELLBUTRIN [Concomitant]
  5. CRISTALOXINE [Concomitant]
  6. VITAPLEX MINERAL [Concomitant]
  7. COPAXONE [Concomitant]
  8. GLUCOPHAGE [Concomitant]
  9. REGLAN [Concomitant]
  10. TRILEPTAL [Concomitant]
  11. ALPRAZOLAM [Concomitant]
  12. REQUIP [Concomitant]
  13. INSULIN DETEMIR [Concomitant]
  14. HUMALOG [Concomitant]
  15. ACTONEL [Concomitant]

REACTIONS (1)
  - FATIGUE [None]
